FAERS Safety Report 7248490-3 (Version None)
Quarter: 2011Q1

REPORT INFORMATION
  Report Type: 
  Country: None (occurrence: None)
  Receive Date: 20110127
  Receipt Date: 20110120
  Transmission Date: 20110831
  Serious: Yes (Other)
  Sender: FDA-Public Use
  Company Number: US-RB-017358-10

PATIENT
  Age: 56 Year
  Sex: Female

DRUGS (3)
  1. SUBOXONE [Suspect]
     Indication: PAIN
     Route: 060
     Dates: start: 20101001, end: 20101101
  2. BUPRENORPHINE TABLETS [Suspect]
     Indication: PAIN
     Dosage: DOSE VARIES
     Route: 060
     Dates: start: 20101101, end: 20101201
  3. BUPRENEX [Suspect]
     Indication: PRODUCT USED FOR UNKNOWN INDICATION
     Dosage: UNKNOWN DOSING DETAILS
     Route: 065
     Dates: start: 20101201

REACTIONS (6)
  - HEADACHE [None]
  - NAUSEA [None]
  - FEELING ABNORMAL [None]
  - HALLUCINATION, AUDITORY [None]
  - OFF LABEL USE [None]
  - FATIGUE [None]
